FAERS Safety Report 14038574 (Version 3)
Quarter: 2017Q4

REPORT INFORMATION
  Report Type: Report from Study
  Country: US (occurrence: US)
  Receive Date: 20171004
  Receipt Date: 20171109
  Transmission Date: 20180321
  Serious: Yes (Hospitalization)
  Sender: FDA-Public Use
  Company Number: US-JNJFOC-20170826919

PATIENT
  Age: 72 Year
  Sex: Female

DRUGS (36)
  1. CALCIUM [Concomitant]
     Active Substance: CALCIUM
  2. IMBRUVICA [Suspect]
     Active Substance: IBRUTINIB
     Indication: CHRONIC LYMPHOCYTIC LEUKAEMIA
     Route: 048
     Dates: start: 20170503, end: 20170917
  3. PRAVACHOL [Concomitant]
     Active Substance: PRAVASTATIN SODIUM
  4. LANTUS [Concomitant]
     Active Substance: INSULIN GLARGINE
  5. ALBUTEROL. [Concomitant]
     Active Substance: ALBUTEROL
  6. KLOR-CON [Concomitant]
     Active Substance: POTASSIUM CHLORIDE
  7. MULTIVITAMINS [Concomitant]
     Active Substance: VITAMINS
  8. ZOFRAN [Concomitant]
     Active Substance: ONDANSETRON HYDROCHLORIDE
  9. GLUCOVANCE [Concomitant]
     Active Substance: GLYBURIDE\METFORMIN HYDROCHLORIDE
  10. ADVAIR HFA [Concomitant]
     Active Substance: FLUTICASONE PROPIONATE\SALMETEROL XINAFOATE
  11. CALCIUM CARBONATE AND VITAMIN D [Concomitant]
     Active Substance: CALCIUM CARBONATE\VITAMIN D
  12. IMBRUVICA [Suspect]
     Active Substance: IBRUTINIB
     Indication: CHRONIC LYMPHOCYTIC LEUKAEMIA
     Route: 048
     Dates: start: 20170309
  13. SIMVASTATIN. [Concomitant]
     Active Substance: SIMVASTATIN
  14. PROCHLORPERAZINE. [Concomitant]
     Active Substance: PROCHLORPERAZINE
  15. PRILOSEC [Concomitant]
     Active Substance: OMEPRAZOLE MAGNESIUM
  16. TOPROL XL [Concomitant]
     Active Substance: METOPROLOL SUCCINATE
  17. BUDESONIDE. [Concomitant]
     Active Substance: BUDESONIDE
  18. ATORVASTATIN [Concomitant]
     Active Substance: ATORVASTATIN
  19. LASIX [Concomitant]
     Active Substance: FUROSEMIDE
  20. ASCORBIC ACID. [Concomitant]
     Active Substance: ASCORBIC ACID
  21. VITAMIN D [Concomitant]
     Active Substance: CHOLECALCIFEROL
  22. NOVOLOG [Concomitant]
     Active Substance: INSULIN ASPART
  23. LISINOPRIL AND HYDROCHLOROTHIAZIDE [Concomitant]
     Active Substance: HYDROCHLOROTHIAZIDE\LISINOPRIL
  24. ACYCLOVIR. [Concomitant]
     Active Substance: ACYCLOVIR
  25. GLIMEPIRIDE. [Concomitant]
     Active Substance: GLIMEPIRIDE
  26. TYLENOL [Concomitant]
     Active Substance: ACETAMINOPHEN
  27. IMBRUVICA [Suspect]
     Active Substance: IBRUTINIB
     Indication: CHRONIC LYMPHOCYTIC LEUKAEMIA
     Dosage: 280 MG, QD
     Route: 048
     Dates: start: 20170508, end: 2017
  28. IMBRUVICA [Suspect]
     Active Substance: IBRUTINIB
     Indication: CHRONIC LYMPHOCYTIC LEUKAEMIA
     Route: 048
     Dates: start: 20160627
  29. SYNTHROID [Concomitant]
     Active Substance: LEVOTHYROXINE SODIUM
  30. AVASTIN [Concomitant]
     Active Substance: BEVACIZUMAB
  31. VITAMIN D3 [Concomitant]
     Active Substance: CHOLECALCIFEROL
  32. LISINOPRIL. [Concomitant]
     Active Substance: LISINOPRIL
  33. HCTZ [Concomitant]
     Active Substance: HYDROCHLOROTHIAZIDE
  34. IMBRUVICA [Suspect]
     Active Substance: IBRUTINIB
     Indication: CHRONIC LYMPHOCYTIC LEUKAEMIA
     Route: 048
     Dates: start: 2017
  35. NORCO [Concomitant]
     Active Substance: ACETAMINOPHEN\HYDROCODONE BITARTRATE
  36. LOSARTAN. [Concomitant]
     Active Substance: LOSARTAN

REACTIONS (7)
  - Spinal pain [Unknown]
  - Adverse drug reaction [Unknown]
  - Stomatitis [Unknown]
  - Bundle branch block right [Unknown]
  - Muscle spasms [Unknown]
  - Hypertension [Unknown]
  - Pyrexia [Unknown]

NARRATIVE: CASE EVENT DATE: 2017
